FAERS Safety Report 10897912 (Version 2)
Quarter: 2015Q1

REPORT INFORMATION
  Report Type: Spontaneous
  Country: US (occurrence: US)
  Receive Date: 20150309
  Receipt Date: 20150330
  Transmission Date: 20150721
  Serious: Yes (Life-Threatening, Other)
  Sender: FDA-Public Use
  Company Number: US-ASTRAZENECA-2015SE21757

PATIENT
  Age: 62 Year
  Sex: Female

DRUGS (5)
  1. AROMASIN [Suspect]
     Active Substance: EXEMESTANE
     Indication: BREAST CANCER METASTATIC
     Route: 065
     Dates: start: 201311, end: 201405
  2. ZOMETA [Concomitant]
     Active Substance: ZOLEDRONIC ACID
     Dosage: ON AND OFF, 2013-2014
     Dates: end: 201302
  3. ZOMETA [Concomitant]
     Active Substance: ZOLEDRONIC ACID
     Dates: start: 201311
  4. FASLODEX [Concomitant]
     Active Substance: FULVESTRANT
  5. ARIMIDEX [Suspect]
     Active Substance: ANASTROZOLE
     Indication: BREAST CANCER METASTATIC
     Route: 048
     Dates: start: 2013

REACTIONS (8)
  - Uterine prolapse [None]
  - Multi-organ disorder [None]
  - Burning sensation [None]
  - Urinary tract pain [None]
  - Malignant neoplasm progression [Unknown]
  - Vertigo [Unknown]
  - Urinary tract disorder [None]
  - Drug ineffective [None]
